FAERS Safety Report 8329797-5 (Version None)
Quarter: 2012Q2

REPORT INFORMATION
  Report Type: 
  Country: None (occurrence: None)
  Receive Date: 20120502
  Receipt Date: 20120421
  Transmission Date: 20120825
  Serious: Yes (Other)
  Sender: FDA-Public Use
  Company Number: DE-BRISTOL-MYERS SQUIBB COMPANY-16540734

PATIENT
  Age: 5 Decade
  Sex: Male

DRUGS (1)
  1. IPILIMUMAB [Suspect]
     Indication: METASTATIC MALIGNANT MELANOMA
     Dosage: RECEIVED 2ND ADMINISTRATION

REACTIONS (2)
  - RHEUMATOID ARTHRITIS [None]
  - NEOPLASM MALIGNANT [None]
